FAERS Safety Report 7321166-X (Version None)
Quarter: 2011Q1

REPORT INFORMATION
  Report Type: 
  Country: None (occurrence: None)
  Receive Date: 20110228
  Receipt Date: 20110222
  Transmission Date: 20110831
  Serious: Yes (Hospitalization, Other)
  Sender: FDA-Public Use
  Company Number: US-JNJFOC-20100804539

PATIENT
  Sex: Female

DRUGS (3)
  1. LEVAQUIN [Suspect]
     Indication: BRONCHITIS
     Route: 048
  2. LEVAQUIN [Suspect]
     Indication: PNEUMONIA
     Route: 048
  3. LEVAQUIN [Suspect]
     Indication: SINUSITIS
     Route: 048

REACTIONS (6)
  - JOINT INJURY [None]
  - DEPRESSION [None]
  - ANXIETY [None]
  - ROTATOR CUFF SYNDROME [None]
  - POST-TRAUMATIC STRESS DISORDER [None]
  - MEMORY IMPAIRMENT [None]
